FAERS Safety Report 16950494 (Version 1)
Quarter: 2019Q4

REPORT INFORMATION
  Report Type: Spontaneous
  Country: US (occurrence: US)
  Receive Date: 20191022
  Receipt Date: 20191022
  Transmission Date: 20200122
  Serious: Yes (Hospitalization)
  Sender: FDA-Public Use
  Company Number: None

PATIENT
  Age: 56 Year
  Sex: Female

DRUGS (18)
  1. COSENTYX [Suspect]
     Active Substance: SECUKINUMAB
     Indication: RHEUMATOID ARTHRITIS
     Route: 058
  2. GABAPENTIN. [Suspect]
     Active Substance: GABAPENTIN
  3. HYDROCODONE BITARTRATE AND ACETAMINOPHEN [Suspect]
     Active Substance: ACETAMINOPHEN\HYDROCODONE BITARTRATE
  4. CENTRUM [Concomitant]
     Active Substance: VITAMINS
  5. METHYLPREDNISOLONE. [Suspect]
     Active Substance: METHYLPREDNISOLONE
  6. AMLODIPINE [Suspect]
     Active Substance: AMLODIPINE BESYLATE
  7. CYCLOBENZAPRINE. [Suspect]
     Active Substance: CYCLOBENZAPRINE
  8. ALLEGRA [Concomitant]
     Active Substance: FEXOFENADINE HYDROCHLORIDE
  9. VITD [Concomitant]
  10. ATEN OLOL [Concomitant]
  11. METOPROLOL ER [Suspect]
     Active Substance: METOPROLOL SUCCINATE
  12. CELEBREX [Suspect]
     Active Substance: CELECOXIB
  13. METOPROLOL. [Suspect]
     Active Substance: METOPROLOL
  14. APAP/CODEINE [Concomitant]
     Active Substance: ACETAMINOPHEN\CODEINE PHOSPHATE
  15. PREDNISONE. [Suspect]
     Active Substance: PREDNISONE
  16. FOLIC ACID. [Suspect]
     Active Substance: FOLIC ACID
  17. COSENTYX [Suspect]
     Active Substance: SECUKINUMAB
     Indication: ANKYLOSING SPONDYLITIS
     Route: 058
  18. LISINOPRIL. [Suspect]
     Active Substance: LISINOPRIL

REACTIONS (5)
  - Therapy cessation [None]
  - Sciatica [None]
  - Insurance issue [None]
  - Swelling [None]
  - Condition aggravated [None]
